FAERS Safety Report 15753476 (Version 2)
Quarter: 2018Q4

REPORT INFORMATION
  Report Type: Spontaneous
  Country: US (occurrence: US)
  Receive Date: 20181222
  Receipt Date: 20181222
  Transmission Date: 20190205
  Serious: No
  Sender: FDA-Public Use
  Company Number: US-MALLINCKRODT-T201803865

PATIENT
  Age: 58 Year
  Sex: Male

DRUGS (1)
  1. FENTANYL TRANSDERMAL SYSTEM [Suspect]
     Active Substance: FENTANYL
     Indication: PAIN
     Dosage: 50 MCG/HOUR, EVERY 72 HOURS
     Route: 062
     Dates: start: 2018

REACTIONS (7)
  - Application site pruritus [Unknown]
  - Neuralgia [Unknown]
  - Product quality issue [Unknown]
  - Skin swelling [Unknown]
  - Pain [None]
  - Sleep disorder [Unknown]
  - Application site erythema [Unknown]
